FAERS Safety Report 26083578 (Version 1)
Quarter: 2025Q4

REPORT INFORMATION
  Report Type: Report from Study
  Country: CN (occurrence: CN)
  Receive Date: 20251124
  Receipt Date: 20251124
  Transmission Date: 20260118
  Serious: Yes (Hospitalization, Other)
  Sender: NOVO NORDISK
  Company Number: CN-NOVOPROD-1566359

PATIENT
  Sex: Male
  Weight: 65 kg

DRUGS (2)
  1. NOVOEIGHT [Suspect]
     Active Substance: ANTIHEMOPHILIC FACTOR, HUMAN RECOMBINANT
     Indication: Haemarthrosis
  2. NOVOEIGHT [Suspect]
     Active Substance: ANTIHEMOPHILIC FACTOR, HUMAN RECOMBINANT
     Indication: Factor VIII deficiency
     Dosage: 2500 IU, QD
     Route: 042
     Dates: start: 20250814

REACTIONS (4)
  - Haemarthrosis [Recovering/Resolving]
  - Arthropathy [Unknown]
  - Spontaneous haemorrhage [Unknown]
  - Haemorrhage [Unknown]
